FAERS Safety Report 9917674 (Version 1)
Quarter: 2014Q1

REPORT INFORMATION
  Report Type: Spontaneous
  Country: US (occurrence: US)
  Receive Date: 20140221
  Receipt Date: 20140221
  Transmission Date: 20141002
  Serious: Yes (Other)
  Sender: FDA-Public Use
  Company Number: US-BAXTER-2014BAX008844

PATIENT
  Sex: 0

DRUGS (4)
  1. CYTOXAN? (CYCLOPHOSPHAMIDE FOR INJECTION, USP) [Suspect]
     Indication: NON-SMALL CELL LUNG CANCER
     Route: 065
     Dates: start: 20120731, end: 20130214
  2. GEMCITABINE [Suspect]
     Indication: NON-SMALL CELL LUNG CANCER
     Route: 065
     Dates: start: 20130311
  3. BEVACIZUMAB [Suspect]
     Indication: NON-SMALL CELL LUNG CANCER
     Route: 065
     Dates: start: 20130311
  4. VOMETA [Concomitant]
     Indication: METASTASES TO BONE
     Route: 065

REACTIONS (2)
  - Disease progression [Unknown]
  - Metastases to liver [Unknown]
